FAERS Safety Report 24868072 (Version 1)
Quarter: 2025Q1

REPORT INFORMATION
  Report Type: Spontaneous
  Country: US (occurrence: US)
  Receive Date: 20250121
  Receipt Date: 20250121
  Transmission Date: 20250409
  Serious: No
  Sender: Haleon PLC
  Company Number: US-HALEON-2223225

PATIENT

DRUGS (1)
  1. THERAFLU SEVERE COLD RELIEF NIGHTTIME NOS [Suspect]
     Active Substance: UNSPECIFIED INGREDIENT
     Indication: Product used for unknown indication
     Dates: start: 20250114

REACTIONS (4)
  - Feeling jittery [Unknown]
  - Feeling abnormal [Unknown]
  - Nervousness [Unknown]
  - Restless legs syndrome [Unknown]

NARRATIVE: CASE EVENT DATE: 20250114
